FAERS Safety Report 21540419 (Version 3)
Quarter: 2024Q4

REPORT INFORMATION
  Report Type: Spontaneous
  Country: ZA (occurrence: ZA)
  Receive Date: 20221102
  Receipt Date: 20241018
  Transmission Date: 20250115
  Serious: Yes (Hospitalization)
  Sender: AMGEN
  Company Number: ZA-PFIZER INC-PV202200089726

PATIENT
  Age: 19 Year
  Sex: Female

DRUGS (2)
  1. ENBREL [Suspect]
     Active Substance: ETANERCEPT
     Indication: Juvenile idiopathic arthritis
     Dosage: 50 MG, WEEKLY
     Route: 065
     Dates: start: 201911
  2. METHOTREXATE [Concomitant]
     Active Substance: METHOTREXATE
     Indication: Product used for unknown indication
     Dosage: 15 MG, WEEKLY
     Route: 065
     Dates: start: 201810

REACTIONS (5)
  - Abdominal pain [Unknown]
  - Constipation [Unknown]
  - Arthritis [Unknown]
  - Osteopenia [Unknown]
  - Joint swelling [Unknown]
